FAERS Safety Report 21512327 (Version 2)
Quarter: 2022Q4

REPORT INFORMATION
  Report Type: Report from Study
  Country: US (occurrence: US)
  Receive Date: 20221027
  Receipt Date: 20221029
  Transmission Date: 20230112
  Serious: No
  Sender: FDA-Public Use
  Company Number: US-ABBVIE-4152388

PATIENT
  Sex: Female

DRUGS (5)
  1. VENCLEXTA [Suspect]
     Active Substance: VENETOCLAX
     Indication: Chronic lymphocytic leukaemia
     Route: 048
     Dates: start: 20210915
  2. VENCLEXTA [Suspect]
     Active Substance: VENETOCLAX
     Indication: Chronic lymphocytic leukaemia
     Route: 048
     Dates: start: 20220401, end: 20221012
  3. Moderna [Concomitant]
     Indication: COVID-19 immunisation
     Dosage: 1 IN ONCE 1ST DOSE
     Route: 030
  4. Moderna [Concomitant]
     Indication: COVID-19 immunisation
     Dosage: 1 IN ONCE 2ND DOSE
     Route: 030
  5. Moderna [Concomitant]
     Indication: COVID-19 immunisation
     Dosage: 1 IN ONCE BOOSTER DOSE
     Route: 030
     Dates: start: 202201, end: 202201

REACTIONS (7)
  - Memory impairment [Not Recovered/Not Resolved]
  - Abdominal distension [Not Recovered/Not Resolved]
  - Weight decreased [Recovering/Resolving]
  - Oropharyngeal pain [Not Recovered/Not Resolved]
  - Arthralgia [Not Recovered/Not Resolved]
  - Fatigue [Not Recovered/Not Resolved]
  - Pain [Not Recovered/Not Resolved]

NARRATIVE: CASE EVENT DATE: 20220101
